FAERS Safety Report 9736360 (Version 1)
Quarter: 2013Q4

REPORT INFORMATION
  Report Type: Report from Study
  Country: US (occurrence: US)
  Receive Date: 20131206
  Receipt Date: 20131206
  Transmission Date: 20140711
  Serious: Yes (Hospitalization)
  Sender: FDA-Public Use
  Company Number: US-ROCHE-1308205

PATIENT
  Sex: Male

DRUGS (17)
  1. ROCEPHIN [Suspect]
     Indication: PRODUCT USED FOR UNKNOWN INDICATION
     Route: 065
  2. XOLAIR [Suspect]
     Indication: PRODUCT USED FOR UNKNOWN INDICATION
     Dosage: EVERY TWO WEEKS
     Route: 065
  3. ADVAIR DISKUS [Concomitant]
     Dosage: 2 PUFFS DAILY
     Route: 065
  4. ALBUTEROL SULFATE [Concomitant]
     Dosage: 2.5MG/3ML NEB UP TO 4 TIMES DAILY AS NEEDED
     Route: 065
  5. FLONASE [Concomitant]
     Dosage: SUPSENSION 1 SPRAY EACH NOSTRIL TWICE DAILY
     Route: 065
  6. XOPENEX HFA [Concomitant]
     Dosage: 1.25MG/3ML NEB AS NEEDED
     Route: 065
  7. SINGULAIR [Concomitant]
     Dosage: 1 AT BEDTIME
     Route: 048
  8. ALLOPURINOL [Concomitant]
     Dosage: 1 DAILY
     Route: 048
  9. GABAPENTIN [Concomitant]
     Dosage: 2 DAILY
     Route: 065
  10. NEXIUM [Concomitant]
     Dosage: 1 DAILY
     Route: 048
  11. OXYCODONE/ACETAMINOPHEN [Concomitant]
     Dosage: 2 EVERY 6 HOURS
     Route: 065
  12. VERELAN [Concomitant]
     Dosage: 1 DAILY
     Route: 048
  13. PREDNISONE [Concomitant]
     Dosage: 2 FOR 3 DAYS
     Route: 065
  14. PREDNISONE [Concomitant]
     Dosage: 1 FOR 3 DAYS
     Route: 065
  15. PREDNISONE [Concomitant]
     Dosage: HALF TABLET FOR 3 DAYS
     Route: 065
  16. LISINOPRIL [Concomitant]
     Route: 065
  17. AMLODIPINE BESYLATE [Concomitant]
     Route: 048

REACTIONS (4)
  - Respiratory failure [Unknown]
  - Hypoxia [Unknown]
  - Sinusitis [Unknown]
  - Upper respiratory tract infection [Unknown]
